FAERS Safety Report 8402679-6 (Version None)
Quarter: 2012Q2

REPORT INFORMATION
  Report Type: 
  Country: None (occurrence: None)
  Receive Date: 20120601
  Receipt Date: 20120518
  Transmission Date: 20120825
  Serious: Yes (Other)
  Sender: FDA-Public Use
  Company Number: IT-CELGENEUS-083-21880-12010262

PATIENT
  Sex: Female

DRUGS (14)
  1. METOCLOPRAMIDE HYDROCHLORIDE [Concomitant]
     Route: 048
  2. SEQUACOR [Concomitant]
     Dosage: 1 TABLET
     Route: 048
  3. DEXAMETHASONE SODIUM PHOSPHATE [Concomitant]
     Indication: CHEMOTHERAPY
     Route: 048
     Dates: start: 20110527, end: 20120201
  4. MOVIPREP [Concomitant]
     Route: 065
  5. BUPRENORPHINE [Concomitant]
     Dosage: 1260 MICROGRAM
     Route: 062
  6. CITALOPRAM HYDROBROMIDE [Concomitant]
     Dosage: 6 DROPS EVENING/4 DROPS MORNNING
     Route: 048
  7. RABEPRAZOLE SODIUM [Concomitant]
     Dosage: 1 TABLET
     Route: 048
  8. ALLOPURINOL [Concomitant]
     Dosage: 1/2 TABLET
     Route: 048
  9. REVLIMID [Suspect]
     Indication: MULTIPLE MYELOMA
     Dosage: 10 MILLIGRAM
     Route: 048
     Dates: start: 20050921, end: 20060517
  10. PURSENNID [Concomitant]
     Route: 048
  11. DELORAZEPAM [Concomitant]
     Dosage: 5-10 DROPS
     Route: 048
  12. DOBETIN [Concomitant]
     Route: 065
  13. THALIDOMIDE [Suspect]
     Indication: CHEMOTHERAPY
     Dosage: 50 MILLIGRAM
     Route: 048
     Dates: start: 20110527, end: 20120201
  14. ORAMORPH SR [Concomitant]
     Route: 065

REACTIONS (1)
  - BASAL CELL CARCINOMA [None]
